FAERS Safety Report 4308597-7 (Version None)
Quarter: 2004Q1

REPORT INFORMATION
  Report Type: 
  Country: None (occurrence: None)
  Receive Date: 20040226
  Receipt Date: 20030722
  Transmission Date: 20041129
  Serious: Yes (Life-Threatening, Other)
  Sender: FDA-Public Use
  Company Number: 2003152032US

PATIENT
  Age: 37 Year
  Sex: Female

DRUGS (1)
  1. CELEBREX [Suspect]
     Indication: DYSMENORRHOEA
     Dosage: SINGLE, ORAL
     Route: 048

REACTIONS (1)
  - ANAPHYLACTIC REACTION [None]
